FAERS Safety Report 19072588 (Version 1)
Quarter: 2021Q1

REPORT INFORMATION
  Report Type: Spontaneous
  Country: US (occurrence: US)
  Receive Date: 20210330
  Receipt Date: 20210330
  Transmission Date: 20210420
  Serious: Yes (Disabling)
  Sender: FDA-Public Use
  Company Number: None

PATIENT
  Age: 34 Year
  Sex: Female
  Weight: 55.35 kg

DRUGS (21)
  1. VITAMIN D [Concomitant]
     Active Substance: VITAMIN D NOS
  2. COENZYME Q10 [Concomitant]
     Active Substance: DIETARY SUPPLEMENT\UBIDECARENONE
  3. FLONASE [Concomitant]
     Active Substance: FLUTICASONE PROPIONATE
  4. KEFLEX [Concomitant]
     Active Substance: CEPHALEXIN
  5. MAGNESIUM [Concomitant]
     Active Substance: MAGNESIUM
  6. PRENATAL MULTIVITAMIN [Concomitant]
  7. CLARITIN [Concomitant]
     Active Substance: LORATADINE
  8. TYLENOL WITH CODEINE [Concomitant]
     Active Substance: ACETAMINOPHEN\CODEINE PHOSPHATE
  9. XANAX [Concomitant]
     Active Substance: ALPRAZOLAM
  10. BENADRYL [Concomitant]
     Active Substance: DIPHENHYDRAMINE HYDROCHLORIDE
  11. AIMOVIG [Suspect]
     Active Substance: ERENUMAB-AOOE
     Indication: MIGRAINE
     Dosage: ?QUANTITY:1 INJECTION(S);?OTHER FREQUENCY:ONCE EVERY 28 DAYS;?
     Route: 058
     Dates: start: 20210305, end: 20210329
  12. NAPROXEN. [Concomitant]
     Active Substance: NAPROXEN
  13. CALCIUM [Concomitant]
     Active Substance: CALCIUM
  14. AMERGE [Concomitant]
     Active Substance: NARATRIPTAN HYDROCHLORIDE
  15. PROMETHAZINE [Concomitant]
     Active Substance: PROMETHAZINE HYDROCHLORIDE
  16. AMITRIPTYLINE [Concomitant]
     Active Substance: AMITRIPTYLINE
  17. ZINC. [Concomitant]
     Active Substance: ZINC
  18. MELATONIN [Concomitant]
     Active Substance: MELATONIN
  19. STOOL SOFTENER (DOCUSATE) [Concomitant]
     Active Substance: DOCUSATE
  20. IRON [Concomitant]
     Active Substance: IRON
  21. FIBER [Concomitant]
     Active Substance: PSYLLIUM HUSK

REACTIONS (3)
  - Discomfort [None]
  - Constipation [None]
  - Thirst [None]

NARRATIVE: CASE EVENT DATE: 20210306
